FAERS Safety Report 4849294-9 (Version None)
Quarter: 2005Q4

REPORT INFORMATION
  Report Type: 
  Country: None (occurrence: None)
  Receive Date: 20051209
  Receipt Date: 20051129
  Transmission Date: 20060501
  Serious: Yes (Disabling, Other)
  Sender: FDA-Public Use
  Company Number: US-JNJFOC-20051201300

PATIENT
  Age: 86 Year
  Sex: Female

DRUGS (1)
  1. FENTANYL [Suspect]
     Route: 062

REACTIONS (1)
  - DEMENTIA [None]
